FAERS Safety Report 6506283-6 (Version None)
Quarter: 2009Q4

REPORT INFORMATION
  Report Type: 
  Country: None (occurrence: None)
  Receive Date: 20091218
  Receipt Date: 20091210
  Transmission Date: 20100525
  Serious: Yes (Other)
  Sender: FDA-Public Use
  Company Number: JP-ABBOTT-09P-087-0614723-00

PATIENT

DRUGS (2)
  1. VALPROIC ACID [Suspect]
     Indication: SCHIZOPHRENIA
  2. RISPERIDONE [Suspect]
     Indication: SCHIZOPHRENIA

REACTIONS (1)
  - SCHIZOPHRENIA [None]
